FAERS Safety Report 16177695 (Version 1)
Quarter: 2019Q2

REPORT INFORMATION
  Report Type: Spontaneous
  Country: US (occurrence: US)
  Receive Date: 20190410
  Receipt Date: 20190410
  Transmission Date: 20190711
  Serious: No
  Sender: FDA-Public Use
  Company Number: US-TEVA-2019-US-1032246

PATIENT

DRUGS (1)
  1. MICONAZOLE NITRATE. [Suspect]
     Active Substance: MICONAZOLE NITRATE
     Route: 065
     Dates: start: 20190322, end: 20190324

REACTIONS (2)
  - Drug ineffective [Unknown]
  - Product use issue [Unknown]
